FAERS Safety Report 4750399-1 (Version None)
Quarter: 2005Q3

REPORT INFORMATION
  Report Type: 
  Country: None (occurrence: None)
  Receive Date: 20050818
  Receipt Date: 20050804
  Transmission Date: 20060218
  Serious: Yes (Other)
  Sender: FDA-Public Use
  Company Number: US-2005-014427

PATIENT
  Age: 87 Year
  Sex: Female
  Weight: 47.2 kg

DRUGS (7)
  1. CAMPATH [Suspect]
     Indication: CHRONIC LYMPHOCYTIC LEUKAEMIA STAGE 4
     Dosage: 3 MG, 1X/DAY, SUBCUTANEOUS; 10 MG, 1X/DAY, SUBCUTANEOUS; 5 MG, 1X/DAY, SUBCUTANEOUS
     Route: 058
     Dates: start: 20050519, end: 20050520
  2. CAMPATH [Suspect]
     Indication: CHRONIC LYMPHOCYTIC LEUKAEMIA STAGE 4
     Dosage: 3 MG, 1X/DAY, SUBCUTANEOUS; 10 MG, 1X/DAY, SUBCUTANEOUS; 5 MG, 1X/DAY, SUBCUTANEOUS
     Route: 058
     Dates: start: 20050523, end: 20050608
  3. CAMPATH [Suspect]
     Indication: CHRONIC LYMPHOCYTIC LEUKAEMIA STAGE 4
     Dosage: 3 MG, 1X/DAY, SUBCUTANEOUS; 10 MG, 1X/DAY, SUBCUTANEOUS; 5 MG, 1X/DAY, SUBCUTANEOUS
     Route: 058
     Dates: start: 20050613, end: 20050630
  4. BACTRIM DS [Concomitant]
  5. VALTREX [Concomitant]
  6. TYLENOL [Concomitant]
  7. BENADRYL  ACHE (AMMONIUM CHLORIDE, DIPHENHYDRAMINE HYDROCHLORIDE, MENT [Concomitant]

REACTIONS (4)
  - ATELECTASIS [None]
  - OXYGEN SATURATION DECREASED [None]
  - PERICARDIAL EFFUSION [None]
  - UPPER RESPIRATORY TRACT INFECTION [None]
